FAERS Safety Report 10849194 (Version 1)
Quarter: 2015Q1

REPORT INFORMATION
  Report Type: Spontaneous
  Country: US (occurrence: US)
  Receive Date: 20150221
  Receipt Date: 20150221
  Transmission Date: 20150721
  Serious: Yes (Hospitalization)
  Sender: FDA-Public Use
  Company Number: US-CELGENEUS-163-21880-14034581

PATIENT
  Age: 79 Year
  Sex: Female

DRUGS (1)
  1. REVLIMID [Suspect]
     Active Substance: LENALIDOMIDE
     Indication: MYELODYSPLASTIC SYNDROME
     Dosage: 10 MILLIGRAM
     Route: 048
     Dates: start: 20140228, end: 20140416

REACTIONS (5)
  - Rash pruritic [Unknown]
  - Diarrhoea [Unknown]
  - Asthenia [Unknown]
  - Full blood count decreased [Unknown]
  - Confusional state [Unknown]

NARRATIVE: CASE EVENT DATE: 2014
